FAERS Safety Report 6085108-X (Version None)
Quarter: 2009Q1

REPORT INFORMATION
  Report Type: 
  Country: None (occurrence: None)
  Receive Date: 20090220
  Receipt Date: 20090213
  Transmission Date: 20090719
  Serious: Yes (Other)
  Sender: FDA-Public Use
  Company Number: US-ASTRAZENECA-2009UW04206

PATIENT
  Age: 26638 Day
  Sex: Female
  Weight: 78.9 kg

DRUGS (6)
  1. CRESTOR [Suspect]
     Indication: LOW DENSITY LIPOPROTEIN INCREASED
     Route: 048
     Dates: end: 20090207
  2. AMLODIPINE [Concomitant]
     Indication: HYPERTENSION
     Route: 048
  3. GENERIC DYAZIDE [Concomitant]
     Route: 048
  4. LEVOXYL [Concomitant]
     Indication: THYROID DISORDER
     Route: 048
  5. ESTRACE [Concomitant]
     Route: 061
  6. ENABLEX [Concomitant]

REACTIONS (7)
  - BURNING SENSATION [None]
  - DIZZINESS [None]
  - ERYTHEMA [None]
  - HEART RATE INCREASED [None]
  - MUSCULAR WEAKNESS [None]
  - PAIN IN EXTREMITY [None]
  - SYSTOLIC HYPERTENSION [None]
